APPROVED DRUG PRODUCT: ACETAMINOPHEN
Active Ingredient: ACETAMINOPHEN
Strength: 650MG
Dosage Form/Route: SUPPOSITORY;RECTAL
Application: N018337 | Product #001
Applicant: TARO PHARMACEUTICAL INDUSTRIES LTD
Approved: Approved Prior to Jan 1, 1982 | RLD: Yes | RS: No | Type: DISCN